FAERS Safety Report 17188074 (Version 1)
Quarter: 2019Q4

REPORT INFORMATION
  Report Type: Spontaneous
  Country: JP (occurrence: JP)
  Receive Date: 20191221
  Receipt Date: 20191221
  Transmission Date: 20200122
  Serious: Yes (Other)
  Sender: FDA-Public Use
  Company Number: JP-ACCORD-167016

PATIENT
  Age: 63 Year
  Sex: Female

DRUGS (1)
  1. DONEPEZIL/DONEPEZIL HYDROCHLORIDE [Suspect]
     Active Substance: DONEPEZIL HYDROCHLORIDE
     Indication: DEMENTIA ALZHEIMER^S TYPE

REACTIONS (4)
  - Progressive supranuclear palsy [Recovering/Resolving]
  - Unmasking of previously unidentified disease [Recovering/Resolving]
  - Product selection error [Recovered/Resolved]
  - Loss of personal independence in daily activities [Recovering/Resolving]
